FAERS Safety Report 8511456-7 (Version None)
Quarter: 2012Q2

REPORT INFORMATION
  Report Type: 
  Country: None (occurrence: None)
  Receive Date: 20120406
  Receipt Date: 20100504
  Transmission Date: 20120825
  Serious: Yes (Other)
  Sender: FDA-Public Use
  Company Number: PHHY2010US24220

PATIENT
  Age: 45 Year
  Sex: Female
  Weight: 49.9 kg

DRUGS (3)
  1. TASIGNA [Suspect]
     Indication: CHRONIC MYELOID LEUKAEMIA
     Dosage: 400 MG, BID, ORAL
     Route: 048
     Dates: start: 20100413
  2. PHENERGAN HCL [Concomitant]
  3. VICODIN [Concomitant]

REACTIONS (5)
  - HAEMATOCRIT DECREASED [None]
  - NAUSEA [None]
  - PLATELET COUNT INCREASED [None]
  - HAEMOGLOBIN DECREASED [None]
  - PAIN [None]
